FAERS Safety Report 7765498-X (Version None)
Quarter: 2011Q3

REPORT INFORMATION
  Report Type: 
  Country: None (occurrence: None)
  Receive Date: 20110921
  Receipt Date: 20110912
  Transmission Date: 20111222
  Serious: Yes (Disabling, Other)
  Sender: FDA-Public Use
  Company Number: BR-US-EMD SERONO, INC.-7070672

PATIENT
  Sex: Female

DRUGS (4)
  1. VENLAFAXINE HYDROCHLORIDE [Concomitant]
  2. OMEPRAZOLE [Concomitant]
  3. PRIMID [Concomitant]
  4. REBIF [Suspect]
     Indication: RELAPSING-REMITTING MULTIPLE SCLEROSIS
     Route: 058
     Dates: start: 20110204

REACTIONS (4)
  - SUICIDAL IDEATION [None]
  - OSTEOPOROSIS [None]
  - WALKING DISABILITY [None]
  - DEPRESSED MOOD [None]
